FAERS Safety Report 9995665 (Version 1)
Quarter: 2014Q1

REPORT INFORMATION
  Report Type: Spontaneous
  Country: US (occurrence: US)
  Receive Date: 20140311
  Receipt Date: 20140311
  Transmission Date: 20141002
  Serious: No
  Sender: FDA-Public Use
  Company Number: US-GALDERMA-US13002305

PATIENT
  Age: 52 Year
  Sex: Female

DRUGS (11)
  1. TRI-LUMA CREAM (FLUOCINOLONE ACETONIDE 0.01%, HYDROQUINONE 4%, TRETINO [Suspect]
     Indication: PIGMENTATION DISORDER
     Route: 061
     Dates: start: 201303
  2. TRI-LUMA CREAM (FLUOCINOLONE ACETONIDE 0.01%, HYDROQUINONE 4%, TRETINO [Suspect]
     Indication: SCAR
  3. AMBIEN [Concomitant]
     Indication: SLEEP DISORDER
     Route: 048
  4. VALIUM [Concomitant]
     Indication: ANXIETY
     Route: 048
  5. VIVISCAL ES [Concomitant]
     Indication: ALOPECIA
     Route: 048
  6. ESTRADIOL [Concomitant]
     Indication: HORMONE REPLACEMENT THERAPY
     Route: 048
  7. BIOTIN [Concomitant]
     Route: 048
  8. VITAMIN D3 [Concomitant]
     Route: 048
  9. TROPIC SUN SPF 30 [Concomitant]
     Indication: PROPHYLAXIS AGAINST SOLAR RADIATION
     Route: 061
  10. IVORY BODY WASH [Concomitant]
     Indication: THERAPEUTIC SKIN CARE TOPICAL
     Route: 061
  11. NEUTROGENA LIQUID CLEANSER [Concomitant]
     Indication: THERAPEUTIC SKIN CARE TOPICAL
     Route: 061

REACTIONS (2)
  - Drug ineffective for unapproved indication [Not Recovered/Not Resolved]
  - Off label use [Not Recovered/Not Resolved]
